FAERS Safety Report 20971573 (Version 1)
Quarter: 2022Q2

REPORT INFORMATION
  Report Type: Spontaneous
  Country: US (occurrence: US)
  Receive Date: 20220616
  Receipt Date: 20220616
  Transmission Date: 20220720
  Serious: No
  Sender: FDA-Public Use
  Company Number: US-009507513-2205USA005580

PATIENT
  Age: 64 Year
  Sex: Male
  Weight: 85.714 kg

DRUGS (2)
  1. PRINIVIL [Suspect]
     Active Substance: LISINOPRIL
     Indication: Blood pressure abnormal
     Dosage: 20 MG, ONCE PER DAY
     Route: 048
     Dates: end: 202111
  2. ZESTRIL [Suspect]
     Active Substance: LISINOPRIL
     Indication: Blood pressure abnormal
     Dosage: 20 MG, ONCE PER DAY
     Dates: start: 202111

REACTIONS (4)
  - Hypertension [Not Recovered/Not Resolved]
  - Drug ineffective [Unknown]
  - Blood cholesterol abnormal [Not Recovered/Not Resolved]
  - Headache [Not Recovered/Not Resolved]

NARRATIVE: CASE EVENT DATE: 20211101
